FAERS Safety Report 6465517-7 (Version None)
Quarter: 2009Q4

REPORT INFORMATION
  Report Type: 
  Country: None (occurrence: None)
  Receive Date: 20091201
  Receipt Date: 20091124
  Transmission Date: 20100525
  Serious: Yes (Death)
  Sender: FDA-Public Use
  Company Number: US-GILEAD-2009-0025666

PATIENT
  Sex: Female
  Weight: 56.296 kg

DRUGS (6)
  1. LETAIRIS [Suspect]
     Indication: PULMONARY ARTERIAL HYPERTENSION
     Route: 048
     Dates: start: 20091107, end: 20091123
  2. REVATIO [Concomitant]
  3. LASIX [Concomitant]
  4. PROCARDIA [Concomitant]
  5. CYTOXAN [Concomitant]
  6. NEXIUM [Concomitant]

REACTIONS (1)
  - DEATH [None]
